FAERS Safety Report 7338990-X (Version None)
Quarter: 2011Q1

REPORT INFORMATION
  Report Type: 
  Country: None (occurrence: None)
  Receive Date: 20110308
  Receipt Date: 20110301
  Transmission Date: 20110831
  Serious: Yes (Hospitalization)
  Sender: FDA-Public Use
  Company Number: DE-MEDIMMUNE-MEDI-0012769

PATIENT
  Age: 6 Month
  Sex: Female
  Weight: 5.59 kg

DRUGS (2)
  1. SYNAGIS [Suspect]
     Route: 030
     Dates: start: 20110222, end: 20110222
  2. SYNAGIS [Suspect]
     Route: 030
     Dates: start: 20101103, end: 20110125

REACTIONS (5)
  - RESPIRATORY SYNCYTIAL VIRUS BRONCHITIS [None]
  - NASOPHARYNGITIS [None]
  - PYREXIA [None]
  - FLUID INTAKE REDUCED [None]
  - COUGH [None]
